FAERS Safety Report 7207445-5 (Version None)
Quarter: 2011Q1

REPORT INFORMATION
  Report Type: 
  Country: None (occurrence: None)
  Receive Date: 20110103
  Receipt Date: 20101221
  Transmission Date: 20110831
  Serious: Yes (Hospitalization, Other)
  Sender: FDA-Public Use
  Company Number: PHHY2010CH87733

PATIENT
  Age: 66 Year
  Sex: Male
  Weight: 66 kg

DRUGS (5)
  1. AZAREK [Interacting]
     Indication: VASCULITIS NECROTISING
     Dosage: 50 MG 2 PER 1DAY(S)
     Route: 048
  2. PREDNISONE [Suspect]
     Indication: VASCULITIS NECROTISING
     Dosage: 7.5 MG
     Route: 048
  3. SORTIS [Concomitant]
     Indication: CEREBRAL ARTERIOSCLEROSIS
     Dosage: 20 MG 1 PER 1 DAY
     Route: 048
  4. PANTOZOL [Concomitant]
     Indication: GASTROOESOPHAGEAL REFLUX DISEASE
     Dosage: 20 MG, 1 PER 1 DAY
     Route: 048
  5. ASPIRIN [Concomitant]
     Indication: CEREBRAL ARTERIOSCLEROSIS
     Dosage: 100 MG, 1 PER 1DAY
     Route: 048

REACTIONS (11)
  - HELICOBACTER GASTRITIS [None]
  - FAECES PALE [None]
  - VERTIGO [None]
  - HIATUS HERNIA [None]
  - RETICULOCYTE COUNT DECREASED [None]
  - DIARRHOEA [None]
  - DIZZINESS [None]
  - OESOPHAGEAL CANDIDIASIS [None]
  - DYSPNOEA [None]
  - ANAEMIA [None]
  - DRUG INTERACTION [None]
